FAERS Safety Report 7202742-1 (Version None)
Quarter: 2010Q4

REPORT INFORMATION
  Report Type: 
  Country: None (occurrence: None)
  Receive Date: 20101229
  Receipt Date: 20101227
  Transmission Date: 20110411
  Serious: Yes (Hospitalization)
  Sender: FDA-Public Use
  Company Number: JP-BAYER-200912928BYL

PATIENT
  Sex: Male
  Weight: 57.5 kg

DRUGS (18)
  1. NEXAVAR [Suspect]
     Indication: HEPATIC NEOPLASM MALIGNANT
     Dosage: 400 MG, BID
     Route: 048
     Dates: start: 20090704, end: 20090731
  2. NEXAVAR [Suspect]
     Dosage: 400 MG, QD
     Route: 048
     Dates: start: 20090822, end: 20091030
  3. NEXAVAR [Suspect]
     Route: 048
     Dates: start: 20091205, end: 20100702
  4. NEXAVAR [Suspect]
     Route: 048
     Dates: start: 20100726, end: 20100826
  5. NEXAVAR [Suspect]
     Route: 048
     Dates: start: 20100906
  6. NORVASC [Concomitant]
     Dosage: BEFORE NEXAVAR ADMINISTRATION
     Route: 048
  7. TANATRIL [Concomitant]
     Dosage: BEFORE NEXAVAR ADMINISTRATION
     Route: 048
  8. TENORMIN [Concomitant]
     Dosage: BEFORE NEXAVAR ADMINISTRATION
     Route: 048
  9. MYONAL [Concomitant]
     Dosage: BEFORE NEXAVAR ADMINISTRATION
     Route: 048
  10. CARDENALIN [Concomitant]
     Dosage: BEFORE NEXAVAR ADMINISTRATION
     Route: 048
  11. FERROUS CITRATE [Concomitant]
     Dosage: BEFORE NEXAVAR ADMINISTRATION
     Route: 048
  12. GLYBURIDE [Concomitant]
     Dosage: BEFORE NEXAVAR ADMINISTRATION
     Route: 048
  13. LASIX [Concomitant]
     Dosage: BEFORE NEXAVAR ADMINISTRATION
     Route: 048
  14. PERDIPINE-LA [Concomitant]
     Dosage: BEFORE NEXAVAR ADMINISTRATION
     Route: 048
  15. GASTROM [Concomitant]
     Indication: GASTRITIS PROPHYLAXIS
     Dosage: BEFORE NEXAVAR ADMINISTRATION
     Route: 048
  16. ALDACTONE [Concomitant]
     Dosage: BEFORE NEXAVAR ADMINISTRATION
     Route: 048
  17. KAMAG G [Concomitant]
     Dosage: BEFORE NEXAVAR ADMINISTRATION
     Route: 048
  18. PANALDINE [Concomitant]
     Indication: CEREBROVASCULAR ACCIDENT PROPHYLAXIS
     Dosage: BEFORE NEXAVAR ADMINISTRATION
     Route: 048

REACTIONS (13)
  - ASCITES [None]
  - BLOOD UREA INCREASED [None]
  - CEREBRAL INFARCTION [None]
  - DECREASED APPETITE [None]
  - DIARRHOEA [None]
  - DIZZINESS [None]
  - DYSPHONIA [None]
  - FATIGUE [None]
  - HAEMOGLOBIN DECREASED [None]
  - MALAISE [None]
  - OEDEMA PERIPHERAL [None]
  - PALMAR-PLANTAR ERYTHRODYSAESTHESIA SYNDROME [None]
  - PLATELET COUNT DECREASED [None]
